FAERS Safety Report 6335298-6 (Version None)
Quarter: 2009Q3

REPORT INFORMATION
  Report Type: 
  Country: None (occurrence: None)
  Receive Date: 20090831
  Receipt Date: 20090820
  Transmission Date: 20100115
  Serious: Yes (Other)
  Sender: FDA-Public Use
  Company Number: CA-ASTRAZENECA-2009SE08973

PATIENT
  Sex: Female

DRUGS (2)
  1. ENTOCORT EC [Suspect]
     Indication: CROHN'S DISEASE
     Route: 048
     Dates: start: 20090101
  2. ENTOCORT EC [Suspect]
     Route: 048
     Dates: start: 20090817

REACTIONS (2)
  - CONTUSION [None]
  - PLATELET COUNT DECREASED [None]
